FAERS Safety Report 6410445-6 (Version None)
Quarter: 2009Q4

REPORT INFORMATION
  Report Type: 
  Country: None (occurrence: None)
  Receive Date: 20091022
  Receipt Date: 20091012
  Transmission Date: 20100525
  Serious: Yes (Other)
  Sender: FDA-Public Use
  Company Number: IN-WATSON-2009-08529

PATIENT
  Age: 23 Year
  Sex: Female
  Weight: 50 kg

DRUGS (3)
  1. ATRACURIUM BESYLATE [Suspect]
     Indication: ANAESTHESIA
     Dosage: 25 MG, SINGLE
     Route: 042
  2. MEPERIDINE HCL [Suspect]
     Indication: ANAESTHESIA
     Dosage: 40 MG, SINGLE
     Route: 042
  3. PROPOFOL [Suspect]
     Indication: ANAESTHESIA
     Dosage: 100 MG, SINGLE
     Route: 042

REACTIONS (1)
  - ANAPHYLACTIC REACTION [None]
